FAERS Safety Report 12189897 (Version 1)
Quarter: 2016Q1

REPORT INFORMATION
  Report Type: Report from Study
  Country: US (occurrence: US)
  Receive Date: 20160318
  Receipt Date: 20160318
  Transmission Date: 20160526
  Serious: Yes (Hospitalization, Other)
  Sender: FDA-Public Use
  Company Number: US-AMGEN-USASL2016032269

PATIENT
  Age: 66 Year
  Sex: Female

DRUGS (2)
  1. RITUXAN [Concomitant]
     Active Substance: RITUXIMAB
     Dosage: UNK
  2. ENBREL [Suspect]
     Active Substance: ETANERCEPT
     Indication: RHEUMATOID ARTHRITIS
     Dosage: UNK UNK, QWK
     Route: 065
     Dates: start: 2013

REACTIONS (5)
  - Gallbladder operation [Unknown]
  - Knee arthroplasty [Unknown]
  - Musculoskeletal discomfort [Not Recovered/Not Resolved]
  - Staphylococcal infection [Unknown]
  - Bursitis [Unknown]

NARRATIVE: CASE EVENT DATE: 2013
